FAERS Safety Report 23333654 (Version 2)
Quarter: 2024Q1

REPORT INFORMATION
  Report Type: Report from Study
  Country: US (occurrence: US)
  Receive Date: 20231222
  Receipt Date: 20240115
  Transmission Date: 20240410
  Serious: Yes (Hospitalization, Other)
  Sender: FDA-Public Use
  Company Number: US-ABBVIE-5546672

PATIENT
  Sex: Male

DRUGS (5)
  1. QULIPTA [Suspect]
     Active Substance: ATOGEPANT
     Indication: Product used for unknown indication
     Dosage: 10MILLIGRAM?FIRST ADMIN DATE- 20 SEP 2023
     Route: 048
  2. QULIPTA [Suspect]
     Active Substance: ATOGEPANT
     Indication: Product used for unknown indication
     Dosage: 10MILLIGRAM
     Route: 048
  3. QULIPTA [Suspect]
     Active Substance: ATOGEPANT
     Indication: Product used for unknown indication
     Dosage: 10MG
     Route: 048
  4. NURTEC ODT [Concomitant]
     Active Substance: RIMEGEPANT SULFATE
     Indication: Product used for unknown indication
  5. COVID-19 VACCINE NOS [Suspect]
     Active Substance: COVID-19 VACCINE NOS
     Indication: COVID-19 immunisation
     Dosage: 1 IN 1 DAY
     Route: 030
     Dates: start: 2020, end: 2020

REACTIONS (7)
  - Giant cell arteritis [Unknown]
  - Bacterial sepsis [Unknown]
  - Amnesia [Unknown]
  - Migraine [Not Recovered/Not Resolved]
  - Memory impairment [Not Recovered/Not Resolved]
  - Migraine [Unknown]
  - Immunisation reaction [Unknown]

NARRATIVE: CASE EVENT DATE: 20200101
